FAERS Safety Report 9721328 (Version 2)
Quarter: 2013Q4

REPORT INFORMATION
  Report Type: Spontaneous
  Country: US (occurrence: US)
  Receive Date: 20131129
  Receipt Date: 20131216
  Transmission Date: 20140711
  Serious: No
  Sender: FDA-Public Use
  Company Number: US-PFIZER INC-2013338126

PATIENT
  Age: 55 Year
  Sex: Female

DRUGS (3)
  1. CYTOMEL [Suspect]
     Indication: HYPOTHYROIDISM
     Dosage: 5 MG, DAILY (5 MG, 1 IN 1 D)
  2. ARMOUR THYROID [Suspect]
     Indication: HYPOTHYROIDISM
     Dosage: 30 MG, DAILY  (30MG, 1 IN 1 D)
     Route: 048
     Dates: start: 2011, end: 2013
  3. ARMOUR THYROID [Suspect]
     Dosage: 60 MG, DAILY (60 MG, 1 IN 1 D)
     Route: 048
     Dates: start: 2013

REACTIONS (1)
  - Alopecia [Not Recovered/Not Resolved]
